FAERS Safety Report 8304568-4 (Version None)
Quarter: 2012Q2

REPORT INFORMATION
  Report Type: 
  Country: None (occurrence: None)
  Receive Date: 20120423
  Receipt Date: 20120413
  Transmission Date: 20120825
  Serious: Yes (Hospitalization)
  Sender: FDA-Public Use
  Company Number: JP-GLAXOSMITHKLINE-B0793933A

PATIENT
  Age: 60 Year
  Sex: Male

DRUGS (1)
  1. VALTREX [Suspect]
     Indication: HERPES ZOSTER
     Route: 048

REACTIONS (7)
  - INTESTINAL OBSTRUCTION [None]
  - PROSTATE CANCER [None]
  - DYSURIA [None]
  - BENIGN PROSTATIC HYPERPLASIA [None]
  - URINARY RETENTION [None]
  - ABDOMINAL DISCOMFORT [None]
  - MICTURITION FREQUENCY DECREASED [None]
